FAERS Safety Report 6050163-X (Version None)
Quarter: 2009Q1

REPORT INFORMATION
  Report Type: 
  Country: None (occurrence: None)
  Receive Date: 20090121
  Receipt Date: 20090121
  Transmission Date: 20090719
  Serious: Yes (Life-Threatening, Hospitalization, Disabling, Other)
  Sender: FDA-Public Use
  Company Number: None

PATIENT
  Age: 61 Year
  Sex: Female
  Weight: 106.5953 kg

DRUGS (2)
  1. ABILIFY [Suspect]
     Indication: BIPOLAR DISORDER
     Dosage: 30MG QD PO
     Route: 048
  2. ABILIFY [Suspect]
     Indication: MAJOR DEPRESSION
     Dosage: 30MG QD PO
     Route: 048

REACTIONS (5)
  - DISTURBANCE IN ATTENTION [None]
  - RESTLESS LEGS SYNDROME [None]
  - RHINORRHOEA [None]
  - SOMNOLENCE [None]
  - TYPE 2 DIABETES MELLITUS [None]
